FAERS Safety Report 17498894 (Version 1)
Quarter: 2020Q1

REPORT INFORMATION
  Report Type: Spontaneous
  Country: FR (occurrence: FR)
  Receive Date: 20200304
  Receipt Date: 20200304
  Transmission Date: 20200409
  Serious: Yes (Other)
  Sender: FDA-Public Use
  Company Number: FR-MYLANLABS-2020M1023303

PATIENT
  Age: 60 Year
  Sex: Female

DRUGS (3)
  1. TRAMADOL. [Suspect]
     Active Substance: TRAMADOL
     Indication: MENINGITIS
     Dosage: UNK
  2. FLUCONAZOLE. [Interacting]
     Active Substance: FLUCONAZOLE
     Indication: MENINGITIS
     Dosage: UNK
     Route: 065
  3. FLUCYTOSINE. [Concomitant]
     Active Substance: FLUCYTOSINE
     Indication: MENINGITIS
     Dosage: UNK

REACTIONS (4)
  - Hallucination, auditory [Recovering/Resolving]
  - Hallucination, visual [Recovering/Resolving]
  - Psychotic disorder [Recovering/Resolving]
  - Drug interaction [Unknown]
